FAERS Safety Report 4674333-8 (Version None)
Quarter: 2005Q2

REPORT INFORMATION
  Report Type: 
  Country: None (occurrence: None)
  Receive Date: 20050526
  Receipt Date: 20041206
  Transmission Date: 20051028
  Serious: No
  Sender: FDA-Public Use
  Company Number: US-BRISTOL-MYERS SQUIBB COMPANY-12785432

PATIENT
  Age: 73 Year
  Sex: Male
  Weight: 63 kg

DRUGS (1)
  1. KLOTRIX [Suspect]
     Indication: BLOOD POTASSIUM DECREASED
     Dosage: BEGAN KLOTRIX ABOUT 2-3 YEARS AGO
     Route: 048

REACTIONS (3)
  - ABDOMINAL PAIN [None]
  - DIARRHOEA [None]
  - DRUG ADMINISTRATION ERROR [None]
